FAERS Safety Report 11206160 (Version 1)
Quarter: 2015Q2

REPORT INFORMATION
  Report Type: Spontaneous
  Country: US (occurrence: None)
  Receive Date: 20150618
  Receipt Date: 20150618
  Transmission Date: 20150821
  Serious: Yes (Life-Threatening, Hospitalization, Disabling)
  Sender: FDA-Public Use
  Company Number: None

PATIENT
  Age: 42 Year
  Sex: Male
  Weight: 63.5 kg

DRUGS (4)
  1. FINASTERIDE. [Suspect]
     Active Substance: FINASTERIDE
     Indication: ALOPECIA
     Dates: start: 20130829, end: 20141218
  2. TRILIPIX [Concomitant]
     Active Substance: FENOFIBRIC ACID
  3. VITAMIN D3 [Concomitant]
     Active Substance: CHOLECALCIFEROL
  4. SLO-NIACIN [Concomitant]
     Active Substance: DIETARY SUPPLEMENT

REACTIONS (7)
  - Insomnia [None]
  - Impaired work ability [None]
  - Headache [None]
  - Decreased appetite [None]
  - Sexual dysfunction [None]
  - Fatigue [None]
  - Weight decreased [None]

NARRATIVE: CASE EVENT DATE: 20150505
